FAERS Safety Report 4411705-0 (Version None)
Quarter: 2004Q3

REPORT INFORMATION
  Report Type: 
  Country: None (occurrence: None)
  Receive Date: 20040729
  Receipt Date: 20040715
  Transmission Date: 20050211
  Serious: No
  Sender: FDA-Public Use
  Company Number: 2004UW14774

PATIENT
  Age: 57 Year
  Sex: Female

DRUGS (4)
  1. CRESTOR [Suspect]
     Indication: HYPERCHOLESTEROLAEMIA
     Dosage: 10 MG QD PO
     Route: 048
     Dates: start: 20031101, end: 20040624
  2. HYDROCHLOROTHIAZIDE [Concomitant]
  3. ADALAT [Concomitant]
  4. ATACAND [Concomitant]

REACTIONS (2)
  - MYOSITIS [None]
  - RHABDOMYOLYSIS [None]
